FAERS Safety Report 4348053-3 (Version None)
Quarter: 2004Q2

REPORT INFORMATION
  Report Type: 
  Country: None (occurrence: None)
  Receive Date: 20040422
  Receipt Date: 20040415
  Transmission Date: 20050107
  Serious: Yes (Other)
  Sender: FDA-Public Use
  Company Number: GBWYE432127NOV03

PATIENT
  Age: 46 Year
  Sex: Female

DRUGS (3)
  1. EQUANIL [Suspect]
     Indication: AGORAPHOBIA
     Dosage: 400 MG 9X PER 1 DAY
     Route: 048
     Dates: start: 19970101
  2. CODEINE (CODEINE, , 0) [Suspect]
     Dosage: 8/500
     Route: 048
     Dates: start: 20030101
  3. DIAZEPAM [Suspect]
     Dosage: 60 MG
     Dates: start: 20000101

REACTIONS (4)
  - BLOOD ALKALINE PHOSPHATASE INCREASED [None]
  - GAMMA-GLUTAMYLTRANSFERASE INCREASED [None]
  - HEPATOMEGALY [None]
  - MACROCYTOSIS [None]
